FAERS Safety Report 7386746-4 (Version None)
Quarter: 2011Q1

REPORT INFORMATION
  Report Type: 
  Country: None (occurrence: None)
  Receive Date: 20110331
  Receipt Date: 20110328
  Transmission Date: 20110831
  Serious: Yes (Other)
  Sender: FDA-Public Use
  Company Number: US-PFIZER INC-2011069281

PATIENT
  Sex: Female

DRUGS (2)
  1. NUVARING [Concomitant]
     Indication: ORAL CONTRACEPTION
     Dosage: UNK
  2. ZOLOFT [Suspect]
     Indication: DEPRESSION
     Dosage: UNK
     Route: 048
     Dates: start: 20100901

REACTIONS (2)
  - PARAESTHESIA [None]
  - ILL-DEFINED DISORDER [None]
